FAERS Safety Report 4878855-6 (Version None)
Quarter: 2006Q1

REPORT INFORMATION
  Report Type: 
  Country: None (occurrence: None)
  Receive Date: 20060112
  Receipt Date: 20060110
  Transmission Date: 20060701
  Serious: Yes (Other)
  Sender: FDA-Public Use
  Company Number: DE-GLAXOSMITHKLINE-D0048416A

PATIENT

DRUGS (1)
  1. AVANDAMET [Suspect]
     Route: 065

REACTIONS (3)
  - ABDOMINAL SYMPTOM [None]
  - ASCITES [None]
  - OEDEMA [None]
